FAERS Safety Report 9350635 (Version 1)
Quarter: 2013Q2

REPORT INFORMATION
  Report Type: Spontaneous
  Country: CN (occurrence: CN)
  Receive Date: 20130617
  Receipt Date: 20130617
  Transmission Date: 20140414
  Serious: Yes (Hospitalization)
  Sender: FDA-Public Use
  Company Number: CN-JNJFOC-20130602739

PATIENT
  Sex: Male
  Weight: 60 kg

DRUGS (2)
  1. TYLENOL COLD [Suspect]
     Indication: NASOPHARYNGITIS
     Route: 048
     Dates: start: 20111217
  2. AMIKACIN SULFATE [Suspect]
     Indication: PRODUCT USED FOR UNKNOWN INDICATION
     Route: 041
     Dates: start: 20120107, end: 20120109

REACTIONS (5)
  - Liver injury [Recovering/Resolving]
  - Fatigue [None]
  - Decreased appetite [None]
  - Alanine aminotransferase increased [None]
  - Aspartate aminotransferase increased [None]
